FAERS Safety Report 8321506-9 (Version None)
Quarter: 2012Q2

REPORT INFORMATION
  Report Type: 
  Country: None (occurrence: None)
  Receive Date: 20120430
  Receipt Date: 20120430
  Transmission Date: 20120825
  Serious: Yes (Other)
  Sender: FDA-Public Use
  Company Number: None

PATIENT
  Sex: Female
  Weight: 22.679 kg

DRUGS (1)
  1. SINGULAIR [Suspect]
     Indication: ALLERGIC COUGH
     Dosage: CHEW ONE TABLET
     Route: 048
     Dates: start: 20120305, end: 20120428

REACTIONS (3)
  - IRRITABILITY [None]
  - AGITATION [None]
  - EXCESSIVE EYE BLINKING [None]
